FAERS Safety Report 23703281 (Version 3)
Quarter: 2024Q2

REPORT INFORMATION
  Report Type: Spontaneous
  Country: UY (occurrence: UY)
  Receive Date: 20240403
  Receipt Date: 20240429
  Transmission Date: 20240716
  Serious: No
  Sender: FDA-Public Use
  Company Number: UY-PFIZER INC-PV202400037522

PATIENT
  Sex: Female

DRUGS (1)
  1. ENBREL [Suspect]
     Active Substance: BENZYL ALCOHOL\ETANERCEPT
     Dosage: UNK

REACTIONS (3)
  - Device mechanical issue [Unknown]
  - Device failure [Unknown]
  - Needle issue [Unknown]
